FAERS Safety Report 24891422 (Version 1)
Quarter: 2025Q1

REPORT INFORMATION
  Report Type: Spontaneous
  Country: MX (occurrence: MX)
  Receive Date: 20250127
  Receipt Date: 20250127
  Transmission Date: 20250409
  Serious: Yes (Other)
  Sender: JOHNSON AND JOHNSON
  Company Number: MX-JNJFOC-20250164374

PATIENT
  Age: 24 Year
  Sex: Female
  Weight: 66 kg

DRUGS (9)
  1. SPRAVATO [Suspect]
     Active Substance: ESKETAMINE
     Indication: Depression
     Route: 045
  2. SPRAVATO [Suspect]
     Active Substance: ESKETAMINE
     Route: 045
  3. FLUOXETINE [Concomitant]
     Active Substance: FLUOXETINE HYDROCHLORIDE
  4. PREGABALIN [Concomitant]
     Active Substance: PREGABALIN
     Dosage: EVERY MORNING
  5. PREGABALIN [Concomitant]
     Active Substance: PREGABALIN
     Dosage: QHS (EVERY NIGHT AT BED TIME)
  6. DULOXETINE [Concomitant]
     Active Substance: DULOXETINE
  7. OLANZAPINE [Concomitant]
     Active Substance: OLANZAPINE
     Dosage: QHS (EVERY NIGHT AT BEDTIME)
  8. CLONAZEPAM [Concomitant]
     Active Substance: CLONAZEPAM
  9. CLONAZEPAM [Concomitant]
     Active Substance: CLONAZEPAM

REACTIONS (6)
  - Suicidal ideation [Recovered/Resolved]
  - Depression [Recovering/Resolving]
  - Nausea [Unknown]
  - Dizziness [Unknown]
  - Drug ineffective [Unknown]
  - Drug resistance [Unknown]
